FAERS Safety Report 9438920 (Version 2)
Quarter: 2013Q3

REPORT INFORMATION
  Report Type: Spontaneous
  Country: US (occurrence: US)
  Receive Date: 20130802
  Receipt Date: 20130826
  Transmission Date: 20140515
  Serious: Yes (Other)
  Sender: FDA-Public Use
  Company Number: US-GENZYME-FABR-1002804

PATIENT
  Age: 23 Year
  Sex: Female

DRUGS (7)
  1. FABRAZYME [Suspect]
     Indication: FABRY^S DISEASE
     Dosage: 1 U/KG, Q2W
     Route: 042
     Dates: start: 20090501, end: 20121012
  2. FABRAZYME [Suspect]
     Dosage: 1 U/KG, Q2W
     Route: 042
     Dates: start: 20130108
  3. PRENATAL VITAMINS [Concomitant]
     Indication: PREGNANCY
     Dosage: UNK
     Route: 065
     Dates: start: 20121010, end: 20130531
  4. STOOL SOFTENER [Concomitant]
     Indication: CONSTIPATION
     Dosage: UNK
     Route: 065
  5. IMPLANON [Concomitant]
     Indication: CONTRACEPTION
     Dosage: UNK
     Route: 065
     Dates: end: 20120928
  6. ELAVIL [Concomitant]
     Indication: PAIN
     Dosage: 10 MG, QD
     Route: 065
     Dates: start: 20120928, end: 20121012
  7. VICODIN [Concomitant]
     Indication: PAIN
     Dosage: 5 MG, PRN
     Route: 065
     Dates: start: 20120328, end: 20120928

REACTIONS (3)
  - Pre-eclampsia [Recovered/Resolved]
  - Premature labour [Recovered/Resolved]
  - Maternal exposure during pregnancy [Unknown]
